FAERS Safety Report 7035431-7 (Version None)
Quarter: 2010Q4

REPORT INFORMATION
  Report Type: 
  Country: None (occurrence: None)
  Receive Date: 20101008
  Receipt Date: 20100927
  Transmission Date: 20110411
  Serious: Yes (Other)
  Sender: FDA-Public Use
  Company Number: JP-PFIZER INC-2010106072

PATIENT
  Age: 79 Year
  Sex: Female
  Weight: 60 kg

DRUGS (6)
  1. LYRICA [Suspect]
     Indication: POST HERPETIC NEURALGIA
     Dosage: 75 MG, 2X/DAY
     Route: 048
     Dates: start: 20100629, end: 20100726
  2. LYRICA [Suspect]
     Dosage: 150 MG, 2X/DAY
     Route: 048
     Dates: start: 20100727, end: 20100811
  3. LOXONIN [Suspect]
     Indication: POST HERPETIC NEURALGIA
     Dosage: 50 MG, 3X/DAY
     Route: 048
     Dates: start: 20080916
  4. CODEINE [Concomitant]
     Indication: POST HERPETIC NEURALGIA
     Dosage: 20 MG, 4X/DAY
     Route: 048
     Dates: start: 20081121
  5. MYSLEE [Concomitant]
     Indication: INSOMNIA
     Dosage: 5 MG, UNK
     Route: 048
     Dates: start: 20080929
  6. MARZULENE ES [Concomitant]
     Dosage: 1 MG, 3X/DAY
     Route: 048
     Dates: start: 20080916

REACTIONS (5)
  - BLOOD UREA INCREASED [None]
  - EYELID OEDEMA [None]
  - FACE OEDEMA [None]
  - OEDEMA PERIPHERAL [None]
  - WEIGHT INCREASED [None]
